FAERS Safety Report 7619177-X (Version None)
Quarter: 2011Q3

REPORT INFORMATION
  Report Type: 
  Country: None (occurrence: None)
  Receive Date: 20110718
  Receipt Date: 20110707
  Transmission Date: 20111222
  Serious: Yes (Hospitalization, Other)
  Sender: FDA-Public Use
  Company Number: PHEH2006US09222

PATIENT
  Sex: Male

DRUGS (55)
  1. ZOCOR [Concomitant]
  2. CHEMOTHERAPEUTICS NOS [Concomitant]
  3. OXYBUTYNIN CHLORIDE [Concomitant]
     Dosage: 5 MG, UNK
  4. CLOPIDOGREL BISULFATE [Concomitant]
     Dosage: 75 MG, UNK
  5. AMOXICILLIN [Concomitant]
     Dosage: 250 MG, UNK
  6. TYLENOL W/ CODEINE NO. 3 [Concomitant]
  7. LOVASTATIN [Concomitant]
  8. PREDNISONE [Concomitant]
  9. NIACIN [Concomitant]
  10. XOPENEX [Concomitant]
  11. DETROL [Concomitant]
     Dosage: 4 MG, UNK
  12. PERCOCET [Concomitant]
  13. NYSTATIN [Concomitant]
  14. TEMAZEPAM [Concomitant]
     Dosage: 30 MG, UNK
  15. CHLORHEXIDINE GLUCONATE [Concomitant]
  16. PENICILLIN VK [Concomitant]
     Dosage: 250 MG, UNK
  17. TERAZOSIN HCL [Concomitant]
     Dosage: 2 MG, UNK
  18. TIAZAC [Concomitant]
  19. LOVAZA [Concomitant]
  20. DEXAMETHASONE [Concomitant]
  21. ZOLOFT [Concomitant]
     Dosage: 150 MG, UNK
  22. CALCIUM CARBONATE [Concomitant]
  23. CASODEX [Concomitant]
  24. GOSERELIN ACETATE [Concomitant]
     Dosage: 10.8 MG, UNK
     Route: 058
  25. DOCUSATE CALCIUM [Concomitant]
  26. SENNA [Concomitant]
     Dosage: 8.6 MG, UNK
  27. SENOKOT                                 /UNK/ [Concomitant]
  28. ZOMETA [Suspect]
     Indication: METASTASES TO BONE
     Dates: start: 20030516, end: 20051101
  29. TRILISATE [Concomitant]
  30. MULTI-VITAMINS [Concomitant]
  31. ZOLADEX [Concomitant]
  32. LACTULOSE [Concomitant]
     Dosage: 10 MG, UNK
  33. SIMVASTATIN [Concomitant]
     Dosage: 80 MG, UNK
  34. OMEPRAZOLE [Concomitant]
     Dosage: 20 MG, UNK
  35. IRBESARTAN [Concomitant]
     Dosage: 300 MG, UNK
  36. OXYCONTIN [Concomitant]
  37. VASOTEC [Concomitant]
  38. VANCOMYCIN [Concomitant]
  39. ASPIRIN [Concomitant]
     Dosage: 81 MG, UNK
  40. LOSARTAN [Concomitant]
     Dosage: 25 MG, UNK
  41. SERTRALINE HYDROCHLORIDE [Concomitant]
     Dosage: 100 MG, UNK
  42. PROCRIT                            /00909301/ [Concomitant]
  43. PLAVIX [Concomitant]
  44. FERROUS SULFATE TAB [Concomitant]
  45. AVAPRO [Concomitant]
  46. RESTORIL [Concomitant]
  47. NITROGLYCERIN [Concomitant]
     Dosage: 0.4 MG, UNK
  48. FAMCICLOVIR [Concomitant]
     Dosage: 500 MG, UNK
  49. FENTANYL-100 [Concomitant]
  50. HYTRIN [Concomitant]
  51. MEVACOR [Concomitant]
  52. OXYCODONE HCL [Concomitant]
     Dosage: 10 MG, UNK
  53. NAPROXEN [Concomitant]
     Indication: ARTHRITIS
     Dosage: 250 MG, UNK
  54. BICALUTAMIDE [Concomitant]
     Dosage: 50 MG, UNK
  55. TAXOTERE [Concomitant]

REACTIONS (55)
  - PLEURAL EFFUSION [None]
  - OSTEONECROSIS OF JAW [None]
  - OTITIS EXTERNA [None]
  - ANAEMIA [None]
  - HAEMOGLOBIN DECREASED [None]
  - CEREBRAL ATROPHY [None]
  - LEFT VENTRICULAR DYSFUNCTION [None]
  - NEOPLASM MALIGNANT [None]
  - CARDIOMEGALY [None]
  - HAEMORRHAGE INTRACRANIAL [None]
  - HAEMATOCRIT DECREASED [None]
  - SWELLING [None]
  - SUBDURAL HAEMATOMA [None]
  - SPINAL OSTEOARTHRITIS [None]
  - VERTEBRAL FORAMINAL STENOSIS [None]
  - TENDON CALCIFICATION [None]
  - SKIN ULCER [None]
  - PNEUMONIA [None]
  - STOMATITIS [None]
  - PAIN [None]
  - MASTICATION DISORDER [None]
  - ANXIETY [None]
  - TOOTH LOSS [None]
  - BONE PAIN [None]
  - FALL [None]
  - SPINAL CORD COMPRESSION [None]
  - NASAL SEPTUM DEVIATION [None]
  - COLITIS [None]
  - CEREBRAL ISCHAEMIA [None]
  - BONE DISORDER [None]
  - INJURY [None]
  - ORAL DISORDER [None]
  - RENAL CYST [None]
  - ARRHYTHMIA [None]
  - DEAFNESS NEUROSENSORY [None]
  - HYPERTONIC BLADDER [None]
  - DYSPNOEA [None]
  - LACUNAR INFARCTION [None]
  - LUNG INFILTRATION [None]
  - ORAL PAIN [None]
  - BONE LOSS [None]
  - SYNCOPE [None]
  - SCOLIOSIS [None]
  - RIB FRACTURE [None]
  - CHRONIC OBSTRUCTIVE PULMONARY DISEASE [None]
  - LACERATION [None]
  - DYSPEPSIA [None]
  - HAEMATOCHEZIA [None]
  - DEMENTIA [None]
  - PULMONARY VASCULAR DISORDER [None]
  - INFECTION [None]
  - HEAD INJURY [None]
  - PURPURA [None]
  - INTERVERTEBRAL DISC PROTRUSION [None]
  - CONFUSIONAL STATE [None]
